FAERS Safety Report 5088884-8 (Version None)
Quarter: 2006Q3

REPORT INFORMATION
  Report Type: 
  Country: None (occurrence: None)
  Receive Date: 20060825
  Receipt Date: 20060801
  Transmission Date: 20061208
  Serious: Yes (Hospitalization)
  Sender: FDA-Public Use
  Company Number: DE-MERCK-0608DEU00003

PATIENT
  Age: 67 Year
  Sex: Female
  Weight: 62 kg

DRUGS (3)
  1. ALENDRONATE SODIUM [Suspect]
     Indication: OSTEOPOROSIS
     Route: 048
     Dates: start: 20060115, end: 20060701
  2. LEVOTHYROXINE SODIUM AND POTASSIUM IODIDE [Concomitant]
     Route: 048
     Dates: start: 19850101
  3. CALCIUM CARBONATE AND CHOLECALCIFEROL [Concomitant]
     Route: 065
     Dates: start: 20060101

REACTIONS (3)
  - CHORIORETINITIS [None]
  - RHEUMATOID FACTOR INCREASED [None]
  - URTICARIA [None]
